FAERS Safety Report 10558282 (Version 1)
Quarter: 2014Q4

REPORT INFORMATION
  Report Type: Spontaneous
  Country: US (occurrence: US)
  Receive Date: 20141031
  Receipt Date: 20141031
  Transmission Date: 20150529
  Serious: No
  Sender: FDA-Public Use
  Company Number: US-BAYER-2014-155798

PATIENT
  Age: 51 Year
  Sex: Female

DRUGS (2)
  1. CLIMARA PRO [Suspect]
     Active Substance: ESTRADIOL\LEVONORGESTREL
     Indication: HOT FLUSH
     Dosage: 0.045 MG/0.015MG
     Route: 062
     Dates: start: 201408
  2. CLIMARA PRO [Suspect]
     Active Substance: ESTRADIOL\LEVONORGESTREL
     Indication: MENOPAUSAL SYMPTOMS

REACTIONS (3)
  - Incorrect drug administration duration [Not Recovered/Not Resolved]
  - Product adhesion issue [None]
  - Product physical issue [None]

NARRATIVE: CASE EVENT DATE: 20141018
